FAERS Safety Report 5113268-3 (Version None)
Quarter: 2006Q3

REPORT INFORMATION
  Report Type: 
  Country: None (occurrence: None)
  Receive Date: 20060920
  Receipt Date: 20060906
  Transmission Date: 20061208
  Serious: Yes (Other)
  Sender: FDA-Public Use
  Company Number: 229634

PATIENT
  Sex: Female

DRUGS (1)
  1. RAPTIVA [Suspect]
     Indication: PSORIASIS
     Dosage: 125 MG, SINGLE; SEE IMAGE

REACTIONS (10)
  - ARTHRALGIA [None]
  - ARTHRITIS [None]
  - ASTHMA [None]
  - CHILLS [None]
  - CONDITION AGGRAVATED [None]
  - COUGH [None]
  - MYALGIA [None]
  - OVERDOSE [None]
  - PYREXIA [None]
  - SYSTEMIC LUPUS ERYTHEMATOSUS [None]
